FAERS Safety Report 21243322 (Version 3)
Quarter: 2023Q2

REPORT INFORMATION
  Report Type: Spontaneous
  Country: RU (occurrence: RU)
  Receive Date: 20220823
  Receipt Date: 20230405
  Transmission Date: 20230721
  Serious: Yes (Death, Hospitalization, Other)
  Sender: FDA-Public Use
  Company Number: RU-NOVARTISPH-NVSC2022RU187750

PATIENT
  Age: 0 Year
  Sex: Male
  Weight: 8.4 kg

DRUGS (1)
  1. ZOLGENSMA [Suspect]
     Active Substance: ONASEMNOGENE ABEPARVOVEC-XIOI
     Indication: Spinal muscular atrophy
     Dosage: 46.8 ML, ONCE/SINGLE
     Route: 042
     Dates: start: 20220331, end: 20220331

REACTIONS (5)
  - Death [Fatal]
  - Pneumonia [Unknown]
  - Respiratory tract infection [Unknown]
  - Body temperature increased [Unknown]
  - Respiratory failure [Unknown]

NARRATIVE: CASE EVENT DATE: 20220723
